FAERS Safety Report 4488277-8 (Version None)
Quarter: 2004Q4

REPORT INFORMATION
  Report Type: 
  Country: None (occurrence: None)
  Receive Date: 20041026
  Receipt Date: 20041018
  Transmission Date: 20050328
  Serious: Yes (Death)
  Sender: FDA-Public Use
  Company Number: S04-USA-04678-01

PATIENT
  Age: 54 Year
  Sex: Female

DRUGS (7)
  1. LEXAPRO [Suspect]
     Indication: DEPRESSION
     Route: 048
     Dates: start: 20040101, end: 20040118
  2. LEXAPRO [Suspect]
     Indication: DEPRESSION
     Dosage: 30 MG QD PO
     Route: 048
     Dates: start: 20040119, end: 20040126
  3. LEXAPRO [Suspect]
     Indication: DEPRESSION
     Dosage: 40 MG QD PO
     Route: 048
     Dates: start: 20040127, end: 20040101
  4. PROPOXYPHENE [Suspect]
     Indication: PAIN
     Dates: end: 20040101
  5. KLONOPIN [Concomitant]
  6. ATIVAN [Concomitant]
  7. REMERON [Concomitant]

REACTIONS (6)
  - ACCIDENTAL DEATH [None]
  - ANXIETY [None]
  - INSOMNIA [None]
  - PULMONARY CONGESTION [None]
  - PULMONARY OEDEMA [None]
  - THERAPEUTIC AGENT TOXICITY [None]
